FAERS Safety Report 9172111 (Version 1)
Quarter: 2013Q1

REPORT INFORMATION
  Report Type: Spontaneous
  Country: US (occurrence: US)
  Receive Date: 20130319
  Receipt Date: 20130319
  Transmission Date: 20140127
  Serious: No
  Sender: FDA-Public Use
  Company Number: US-009507513-1303USA008592

PATIENT
  Sex: Female

DRUGS (2)
  1. NASONEX [Suspect]
     Indication: SEASONAL ALLERGY
     Dosage: UNK, BID, 1 SPRAY IN EACH NOSTRIL 2 TIMES A DAY
     Route: 045
     Dates: start: 2010
  2. NASONEX [Suspect]
     Indication: ALLERGIC SINUSITIS

REACTIONS (3)
  - Eye irritation [Not Recovered/Not Resolved]
  - Drug dose omission [Unknown]
  - Product quality issue [Unknown]
